FAERS Safety Report 6973672-5 (Version None)
Quarter: 2010Q3

REPORT INFORMATION
  Report Type: 
  Country: None (occurrence: None)
  Receive Date: 20100909
  Receipt Date: 20100830
  Transmission Date: 20110219
  Serious: Yes (Other)
  Sender: FDA-Public Use
  Company Number: US-AMGEN-QUU394884

PATIENT
  Sex: Female
  Weight: 80 kg

DRUGS (9)
  1. NPLATE [Suspect]
     Indication: IDIOPATHIC THROMBOCYTOPENIC PURPURA
     Route: 058
     Dates: start: 20091001, end: 20100511
  2. PREDNISONE [Concomitant]
  3. ACYCLOVIR [Concomitant]
     Route: 048
  4. DAPSONE [Concomitant]
     Route: 048
  5. METOPROLOL TARTRATE [Concomitant]
     Route: 048
  6. TUMS [Concomitant]
     Route: 048
  7. HYDROXYCHLOROQUINE SULFATE [Concomitant]
     Route: 048
  8. LEVOTHYROXINE SODIUM [Concomitant]
     Route: 048
  9. VITAMIN D [Concomitant]
     Route: 048

REACTIONS (11)
  - BACK PAIN [None]
  - CONTUSION [None]
  - DEEP VEIN THROMBOSIS [None]
  - DIZZINESS [None]
  - FLANK PAIN [None]
  - OEDEMA PERIPHERAL [None]
  - PAIN IN EXTREMITY [None]
  - PETECHIAE [None]
  - THERAPEUTIC RESPONSE DECREASED [None]
  - THROMBOCYTOPENIA [None]
  - THROMBOCYTOSIS [None]
